FAERS Safety Report 17239819 (Version 7)
Quarter: 2020Q2

REPORT INFORMATION
  Report Type: Spontaneous
  Country: US (occurrence: US)
  Receive Date: 20200106
  Receipt Date: 20200422
  Transmission Date: 20200713
  Serious: No
  Sender: FDA-Public Use
  Company Number: US-B.I. PHARMACEUTICALS,INC./RIDGEFIELD-2020-US-000745

PATIENT
  Age: 83 Year
  Sex: Female

DRUGS (2)
  1. TRAMADOL. [Concomitant]
     Active Substance: TRAMADOL
     Indication: PAIN
     Dosage: TRAMAFOL 50MG EVERY 6-8 HOURS AS NEEDED FOR PAIN; X 5 DAYS
     Route: 065
  2. SPIRIVA RESPIMAT [Suspect]
     Active Substance: TIOTROPIUM BROMIDE
     Indication: PRODUCT USED FOR UNKNOWN INDICATION
     Dosage: 2 INHALATIONS ONCE DAILY
     Route: 055
     Dates: start: 2018

REACTIONS (6)
  - Product quality issue [Unknown]
  - Product quality issue [Unknown]
  - Spinal fracture [Unknown]
  - Nasopharyngitis [Unknown]
  - Product quality issue [Unknown]
  - Product quality issue [Unknown]

NARRATIVE: CASE EVENT DATE: 2019
